FAERS Safety Report 7885384-4 (Version None)
Quarter: 2011Q4

REPORT INFORMATION
  Report Type: 
  Country: None (occurrence: None)
  Receive Date: 20111102
  Receipt Date: 20111024
  Transmission Date: 20120403
  Serious: Yes (Other)
  Sender: FDA-Public Use
  Company Number: FR-ASTRAZENECA-2011SE64249

PATIENT
  Age: 26111 Day
  Sex: Female

DRUGS (5)
  1. EUPRESSYL [Concomitant]
  2. ARIMIDEX [Suspect]
     Indication: BREAST CANCER
     Route: 048
     Dates: start: 20080822, end: 20110809
  3. ASPIRIN [Concomitant]
  4. DIAMICRON [Concomitant]
  5. HYZAAR [Concomitant]

REACTIONS (1)
  - RHEUMATOID ARTHRITIS [None]
